FAERS Safety Report 13559028 (Version 1)
Quarter: 2017Q2

REPORT INFORMATION
  Report Type: Spontaneous
  Country: CA (occurrence: CA)
  Receive Date: 20170518
  Receipt Date: 20170518
  Transmission Date: 20170830
  Serious: Yes (Hospitalization)
  Sender: FDA-Public Use
  Company Number: CA-PFIZER INC-2017216816

PATIENT
  Age: 63 Year
  Sex: Female

DRUGS (5)
  1. METONIA [Concomitant]
     Active Substance: METOCLOPRAMIDE
     Dosage: 10 MG, EVERY 4 HRS AS NEEDED
  2. LETROZOLE. [Concomitant]
     Active Substance: LETROZOLE
     Dosage: 2.5 MG, DAILY
  3. ZOPICLONE [Concomitant]
     Active Substance: ZOPICLONE
     Dosage: 5 MG, AS NEEDED AT BEDTIME
  4. IBRANCE [Suspect]
     Active Substance: PALBOCICLIB
     Dosage: 125 MG, DAILY FOR 21 DAYS AND 7 DAYS OFF
     Route: 048
     Dates: start: 20170401
  5. ALENDRONATE [Concomitant]
     Active Substance: ALENDRONATE SODIUM
     Dosage: 70 MG, WEEKLY

REACTIONS (1)
  - Malaise [Unknown]
